FAERS Safety Report 22269904 (Version 2)
Quarter: 2023Q2

REPORT INFORMATION
  Report Type: Spontaneous
  Country: GB (occurrence: GB)
  Receive Date: 20230501
  Receipt Date: 20230508
  Transmission Date: 20230721
  Serious: Yes (Death, Life-Threatening, Hospitalization, Other)
  Sender: FDA-Public Use
  Company Number: GB-MHRA-MED-202303281537468190-WNVDP

PATIENT
  Age: 40 Year
  Sex: Male

DRUGS (3)
  1. IBUPROFEN [Suspect]
     Active Substance: IBUPROFEN
     Indication: Product used for unknown indication
     Dosage: UNK
     Route: 065
  2. NAPROXEN [Suspect]
     Active Substance: NAPROXEN
     Indication: Product used for unknown indication
     Dosage: 500 MILLIGRAM, BID
     Route: 065
     Dates: start: 20221230
  3. DICLOFENAC [Suspect]
     Active Substance: DICLOFENAC
     Indication: Product used for unknown indication
     Dosage: 50 MILLIGRAM(AS NECESSARY, MAX 3 TIMES DAILY )
     Route: 065
     Dates: start: 20221214, end: 20221230

REACTIONS (9)
  - Duodenal ulcer [Fatal]
  - Product label issue [Unknown]
  - Product administration error [Unknown]
  - Upper gastrointestinal haemorrhage [Recovered/Resolved]
  - Loss of consciousness [Not Recovered/Not Resolved]
  - Hypovolaemia [Unknown]
  - Hypotension [Unknown]
  - Cardiac arrest [Unknown]
  - Brain injury [Not Recovered/Not Resolved]

NARRATIVE: CASE EVENT DATE: 20230112
